FAERS Safety Report 5872091-2 (Version None)
Quarter: 2008Q3

REPORT INFORMATION
  Report Type: 
  Country: None (occurrence: None)
  Receive Date: 20080905
  Receipt Date: 20080831
  Transmission Date: 20090109
  Serious: Yes (Hospitalization)
  Sender: FDA-Public Use
  Company Number: A0746034A

PATIENT
  Age: 56 Year
  Sex: Female
  Weight: 83 kg

DRUGS (7)
  1. SERETIDE [Suspect]
     Indication: COUGH
     Route: 055
     Dates: start: 20080821
  2. ARODOIS [Concomitant]
     Indication: DRUG USE FOR UNKNOWN INDICATION
     Dosage: 100MG PER DAY
     Route: 065
     Dates: start: 20080821
  3. CLORANA [Concomitant]
     Indication: DRUG USE FOR UNKNOWN INDICATION
     Dosage: 25MG PER DAY
     Route: 065
  4. VERAPAMIL [Concomitant]
     Indication: DRUG USE FOR UNKNOWN INDICATION
     Dosage: 240MG PER DAY
     Route: 065
  5. SIMVASTATIN [Concomitant]
     Indication: DRUG USE FOR UNKNOWN INDICATION
     Route: 065
     Dates: start: 20080813
  6. SINGULAIR [Concomitant]
     Indication: DRUG USE FOR UNKNOWN INDICATION
     Route: 065
     Dates: start: 20080821
  7. INSULIN INSULATARD NPH NORDISK [Concomitant]
     Route: 065

REACTIONS (1)
  - LOWER LIMB FRACTURE [None]
